FAERS Safety Report 22110712 (Version 1)
Quarter: 2023Q1

REPORT INFORMATION
  Report Type: Spontaneous
  Country: RU (occurrence: None)
  Receive Date: 20230317
  Receipt Date: 20230317
  Transmission Date: 20230417
  Serious: Yes (Other)
  Sender: FDA-Public Use
  Company Number: 2023A059502

PATIENT
  Sex: Male

DRUGS (3)
  1. PULMICORT TURBUHALER [Suspect]
     Active Substance: BUDESONIDE
     Indication: Croup infectious
     Dosage: UNKNOWN UNKNOWN
     Route: 055
  2. PREDNISOLONE [Concomitant]
     Active Substance: PREDNISOLONE
  3. EPINEPHRINE [Concomitant]
     Active Substance: EPINEPHRINE
     Route: 055

REACTIONS (2)
  - Drug ineffective [Unknown]
  - Condition aggravated [Unknown]
